FAERS Safety Report 5246523-7 (Version None)
Quarter: 2007Q1

REPORT INFORMATION
  Report Type: 
  Country: None (occurrence: None)
  Receive Date: 20061201
  Receipt Date: 20060826
  Transmission Date: 20070707
  Serious: No
  Sender: FDA-Public Use
  Company Number: 2006PV020123

PATIENT
  Age: 63 Year
  Sex: Female
  Weight: 70.3075 kg

DRUGS (3)
  1. BYETTA [Suspect]
     Indication: DIABETES MELLITUS NON-INSULIN-DEPENDENT
     Dosage: 5 MCG;BID;SC
     Route: 058
     Dates: start: 20060820
  2. ZELNORM [Concomitant]
  3. PREVACID [Concomitant]

REACTIONS (5)
  - DECREASED APPETITE [None]
  - DIARRHOEA [None]
  - HAEMORRHOIDS [None]
  - INCONTINENCE [None]
  - NAUSEA [None]
